FAERS Safety Report 10172042 (Version 1)
Quarter: 2014Q2

REPORT INFORMATION
  Report Type: Spontaneous
  Country: US (occurrence: US)
  Receive Date: 20140515
  Receipt Date: 20140515
  Transmission Date: 20141212
  Serious: No
  Sender: FDA-Public Use
  Company Number: US-009507513-1405USA001679

PATIENT
  Age: 24 Year
  Sex: Female

DRUGS (1)
  1. NEXPLANON [Suspect]
     Indication: CONTRACEPTION
     Dosage: FREQUENCY-1 ROD FOR 3YEARS
     Route: 059
     Dates: start: 20130401

REACTIONS (1)
  - Menorrhagia [Unknown]
